FAERS Safety Report 5092434-X (Version None)
Quarter: 2006Q3

REPORT INFORMATION
  Report Type: 
  Country: None (occurrence: None)
  Receive Date: 20060825
  Receipt Date: 20060807
  Transmission Date: 20061208
  Serious: Yes (Hospitalization)
  Sender: FDA-Public Use
  Company Number: 2006PV019008

PATIENT
  Age: 44 Year
  Sex: Female

DRUGS (5)
  1. BYETTA [Suspect]
     Indication: DIABETES MELLITUS
     Dosage: 5 MCG;BID;SC
     Route: 058
     Dates: start: 20060628, end: 20060702
  2. AVANDIA [Concomitant]
  3. GLUCOPHAGE [Concomitant]
  4. PAXIL [Concomitant]
  5. ACCUPRIL [Concomitant]

REACTIONS (3)
  - DIABETIC KETOACIDOSIS [None]
  - PYREXIA [None]
  - URTICARIA [None]
